FAERS Safety Report 6448740-7 (Version None)
Quarter: 2009Q4

REPORT INFORMATION
  Report Type: 
  Country: None (occurrence: None)
  Receive Date: 20091120
  Receipt Date: 20090819
  Transmission Date: 20100525
  Serious: No
  Sender: FDA-Public Use
  Company Number: US-KINGPHARMUSA00001-K200901011

PATIENT
  Sex: Female

DRUGS (3)
  1. FLECTOR [Suspect]
     Dosage: UNK
     Route: 061
     Dates: start: 20090201, end: 20090809
  2. QUINAPRIL [Concomitant]
  3. ZEBETA [Concomitant]

REACTIONS (1)
  - BLOOD PRESSURE INCREASED [None]
